FAERS Safety Report 6147530-2 (Version None)
Quarter: 2009Q2

REPORT INFORMATION
  Report Type: 
  Country: None (occurrence: None)
  Receive Date: 20090408
  Receipt Date: 20090406
  Transmission Date: 20091009
  Serious: Yes (Death, Hospitalization)
  Sender: FDA-Public Use
  Company Number: FR-SP-2009-01422

PATIENT
  Age: 67 Year
  Sex: Male

DRUGS (2)
  1. IMMUCYST [Suspect]
     Indication: CARCINOMA IN SITU
     Dosage: 6 THEN 3 WEEKS
     Route: 043
     Dates: start: 20050101, end: 20050901
  2. OFLOXACIN [Concomitant]
     Dosage: 6H AND 12H AFTER INSTILLATION

REACTIONS (2)
  - METASTATIC CARCINOMA OF THE BLADDER [None]
  - TREATMENT FAILURE [None]
